FAERS Safety Report 9302525 (Version 1)
Quarter: 2013Q2

REPORT INFORMATION
  Report Type: Spontaneous
  Country: TN (occurrence: None)
  Receive Date: 20130516
  Receipt Date: 20130516
  Transmission Date: 20140414
  Serious: Yes (Death)
  Sender: FDA-Public Use
  Company Number: KAD201305-000515

PATIENT
  Age: 27 Year
  Sex: Female

DRUGS (2)
  1. AMPHOTERICIN B [Suspect]
     Indication: ZYGOMYCOSIS
     Dosage: 1 MG/KG/DAY (CUMULATIVE DOSE
  2. INSULIN (INSULIN) [Concomitant]

REACTIONS (2)
  - Nervous system disorder [None]
  - Off label use [None]
